FAERS Safety Report 5150703-9 (Version None)
Quarter: 2006Q4

REPORT INFORMATION
  Report Type: 
  Country: None (occurrence: None)
  Receive Date: 20061110
  Receipt Date: 20061110
  Transmission Date: 20070319
  Serious: No
  Sender: FDA-Public Use
  Company Number: None

PATIENT
  Age: 74 Year
  Sex: Male
  Weight: 54.4316 kg

DRUGS (1)
  1. EQUATE  -WALMART-    500MG     PERRIGO [Suspect]
     Indication: HEADACHE
     Dosage: 1 CAPLET   2 DAYS  PO
     Route: 048
     Dates: start: 20061102, end: 20061109

REACTIONS (4)
  - NAUSEA [None]
  - PHARMACEUTICAL PRODUCT COMPLAINT [None]
  - POOR QUALITY DRUG ADMINISTERED [None]
  - PYREXIA [None]
